FAERS Safety Report 5386136-X (Version None)
Quarter: 2007Q3

REPORT INFORMATION
  Report Type: 
  Country: None (occurrence: None)
  Receive Date: 20070713
  Receipt Date: 20070704
  Transmission Date: 20080115
  Serious: Yes (Other)
  Sender: FDA-Public Use
  Company Number: GB-JNJFOC-20070701201

PATIENT
  Sex: Female
  Weight: 55 kg

DRUGS (8)
  1. INFLIXIMAB [Suspect]
     Indication: RHEUMATOID ARTHRITIS
     Route: 042
  2. METHOTREXATE [Concomitant]
  3. PREDNISOLONE [Concomitant]
  4. FOLIC ACID [Concomitant]
  5. HRT [Concomitant]
  6. MAXALON [Concomitant]
  7. MELOXICAM [Concomitant]
  8. MESTINON [Concomitant]

REACTIONS (1)
  - BASAL CELL CARCINOMA [None]
